FAERS Safety Report 7460212-X (Version None)
Quarter: 2011Q2

REPORT INFORMATION
  Report Type: 
  Country: None (occurrence: None)
  Receive Date: 20110505
  Receipt Date: 20110426
  Transmission Date: 20111010
  Serious: Yes (Other)
  Sender: FDA-Public Use
  Company Number: FI-ROCHE-774344

PATIENT
  Sex: Female

DRUGS (1)
  1. MIRCERA [Suspect]
     Route: 065
     Dates: start: 20100101

REACTIONS (2)
  - BONE MARROW FAILURE [None]
  - ANAEMIA [None]
